FAERS Safety Report 8421542-8 (Version None)
Quarter: 2012Q2

REPORT INFORMATION
  Report Type: 
  Country: None (occurrence: None)
  Receive Date: 20120608
  Receipt Date: 20120531
  Transmission Date: 20120825
  Serious: Yes (Hospitalization, Other)
  Sender: FDA-Public Use
  Company Number: US-BAYER-2011-098993

PATIENT
  Age: 19 Year
  Sex: Female
  Weight: 71.655 kg

DRUGS (7)
  1. YASMIN [Suspect]
     Indication: MENORRHAGIA
  2. DILAUDID [Concomitant]
  3. DROSPIRENONE AND ETHINYL ESTRADIOL [Suspect]
     Indication: PREMENSTRUAL SYNDROME
  4. DROSPIRENONE AND ETHINYL ESTRADIOL [Suspect]
  5. DROSPIRENONE AND ETHINYL ESTRADIOL [Suspect]
     Indication: ACNE
     Dosage: UNK
     Dates: start: 20080701, end: 20100301
  6. AMOXICILLIN [Concomitant]
  7. AZITHROMYCIN [Concomitant]

REACTIONS (8)
  - EMOTIONAL DISTRESS [None]
  - PAIN [None]
  - ANXIETY [None]
  - PANCREATITIS [None]
  - GALLBLADDER DISORDER [None]
  - CHOLECYSTITIS CHRONIC [None]
  - INJURY [None]
  - ABDOMINAL PAIN UPPER [None]
